FAERS Safety Report 5631580-6 (Version None)
Quarter: 2008Q1

REPORT INFORMATION
  Report Type: 
  Country: None (occurrence: None)
  Receive Date: 20080215
  Receipt Date: 20080130
  Transmission Date: 20080703
  Serious: Yes (Other)
  Sender: FDA-Public Use
  Company Number: TRP_01048_2008

PATIENT
  Sex: Male

DRUGS (2)
  1. RIBASPHERE [Suspect]
     Indication: HEPATITIS C VIRUS
     Dosage: (DF ORAL)
     Route: 048
     Dates: start: 20071016
  2. PEGASYS [Suspect]
     Indication: HEPATITIS C VIRUS
     Dosage: (DF SUBCUTANEOUS)
     Route: 058
     Dates: start: 20071016

REACTIONS (3)
  - HAEMOPTYSIS [None]
  - LIP HAEMORRHAGE [None]
  - PLATELET COUNT DECREASED [None]
